FAERS Safety Report 11869682 (Version 1)
Quarter: 2015Q4

REPORT INFORMATION
  Report Type: Spontaneous
  Country: US (occurrence: US)
  Receive Date: 20151228
  Receipt Date: 20151228
  Transmission Date: 20160305
  Serious: No
  Sender: FDA-Public Use
  Company Number: US-LUPIN PHARMACEUTICALS INC.-E2B_00004554

PATIENT
  Age: 6 Year
  Sex: Female
  Weight: 17.71 kg

DRUGS (2)
  1. CEFPROZIL FOR ORAL SUSPENSION USP 250 MG/5 ML [Suspect]
     Active Substance: CEFPROZIL
     Indication: SCARLET FEVER
     Route: 048
     Dates: start: 20151117
  2. CEFPROZIL FOR ORAL SUSPENSION USP 250 MG/5 ML [Suspect]
     Active Substance: CEFPROZIL
     Indication: STREPTOCOCCAL INFECTION

REACTIONS (3)
  - Diarrhoea [Not Recovered/Not Resolved]
  - Pyrexia [Not Recovered/Not Resolved]
  - Incorrect product storage [Recovered/Resolved]

NARRATIVE: CASE EVENT DATE: 20151117
